FAERS Safety Report 12990469 (Version 1)
Quarter: 2016Q4

REPORT INFORMATION
  Report Type: Spontaneous
  Country: US (occurrence: US)
  Receive Date: 20161130
  Receipt Date: 20161130
  Transmission Date: 20170207
  Serious: Yes (Hospitalization, Disabling, Other)
  Sender: FDA-Public Use
  Company Number: None

PATIENT
  Age: 39 Year
  Sex: Female
  Weight: 63.11 kg

DRUGS (5)
  1. DAILY MULTI-VITAMIN [Concomitant]
     Active Substance: VITAMINS
  2. MIRENA [Suspect]
     Active Substance: LEVONORGESTREL
  3. VITAMIN B COMPLEX [Concomitant]
     Active Substance: CYANOCOBALAMIN\DEXPANTHENOL\NIACINAMIDE\PYRIDOXINE HYDROCHLORIDE\RIBOFLAVIN 5^-PHOSPHATE SODIUM\THIAMINE HYDROCHLORIDE\VITAMIN B COMPLEX
  4. OMEPRZOLE 20 MG. SANDOZ [Concomitant]
     Active Substance: OMEPRAZOLE
  5. ZYRTEC [Concomitant]
     Active Substance: CETIRIZINE HYDROCHLORIDE

REACTIONS (13)
  - Muscle spasms [None]
  - Pain [None]
  - Insomnia [None]
  - Asthenia [None]
  - Pain in extremity [None]
  - Peroneal nerve palsy [None]
  - Hypoaesthesia [None]
  - Urinary tract infection [None]
  - Paraparesis [None]
  - Neurogenic bladder [None]
  - Areflexia [None]
  - Tachycardia [None]
  - Radiculopathy [None]

NARRATIVE: CASE EVENT DATE: 20160702
